FAERS Safety Report 15390073 (Version 2)
Quarter: 2018Q4

REPORT INFORMATION
  Report Type: Spontaneous
  Country: KW (occurrence: KW)
  Receive Date: 20180917
  Receipt Date: 20181001
  Transmission Date: 20190204
  Serious: Yes (Other)
  Sender: FDA-Public Use
  Company Number: KW-ROCHE-2184541

PATIENT
  Age: 5 Decade
  Sex: Female

DRUGS (1)
  1. ACTILYSE [Suspect]
     Active Substance: ALTEPLASE
     Indication: CEREBROVASCULAR ACCIDENT
     Dosage: 0.5 DF
     Route: 065

REACTIONS (2)
  - Vasoconstriction [Recovered/Resolved]
  - Headache [Recovered/Resolved]
